FAERS Safety Report 22619564 (Version 1)
Quarter: 2023Q2

REPORT INFORMATION
  Report Type: Spontaneous
  Country: KR (occurrence: KR)
  Receive Date: 20230620
  Receipt Date: 20230620
  Transmission Date: 20230721
  Serious: Yes (Other)
  Sender: FDA-Public Use
  Company Number: KR-ASTELLAS-2023US018243

PATIENT
  Age: 79 Year
  Sex: Male

DRUGS (4)
  1. XTANDI [Suspect]
     Active Substance: ENZALUTAMIDE
     Indication: Prostate cancer stage IV
     Dosage: 160 MG, ONCE DAILY (FOUR CAPSULES ONCE DAILY IN THE MORNING)
     Route: 065
     Dates: start: 202304, end: 20230525
  2. MIRABEGRON [Suspect]
     Active Substance: MIRABEGRON
     Indication: Pollakiuria
     Dosage: 50 MG, ONCE DAILY (ONE CAPSULE ONCE DAILY)
     Route: 065
     Dates: end: 20230525
  3. MIRABEGRON [Suspect]
     Active Substance: MIRABEGRON
     Indication: Nocturia
  4. SILODOSIN [Concomitant]
     Active Substance: SILODOSIN
     Indication: Product used for unknown indication
     Dosage: UNK UNK, UNKNOWN FREQ.
     Route: 065
     Dates: end: 20230525

REACTIONS (6)
  - Pulmonary congestion [Unknown]
  - Seizure [Recovered/Resolved]
  - Chills [Unknown]
  - Insomnia [Unknown]
  - Tremor [Unknown]
  - Visual impairment [Unknown]
